FAERS Safety Report 9242597 (Version 2)
Quarter: 2013Q2

REPORT INFORMATION
  Report Type: Spontaneous
  Country: DE (occurrence: DE)
  Receive Date: 20130419
  Receipt Date: 20130610
  Transmission Date: 20140414
  Serious: Yes (Life-Threatening, Other)
  Sender: FDA-Public Use
  Company Number: DE-BRISTOL-MYERS SQUIBB COMPANY-18769794

PATIENT
  Sex: Male
  Weight: 90 kg

DRUGS (1)
  1. ELIQUIS [Suspect]
     Indication: ATRIAL FIBRILLATION
     Route: 048

REACTIONS (2)
  - Blood creatinine increased [Not Recovered/Not Resolved]
  - Nausea [Not Recovered/Not Resolved]
